FAERS Safety Report 22399163 (Version 4)
Quarter: 2023Q2

REPORT INFORMATION
  Report Type: Spontaneous
  Country: DE (occurrence: DE)
  Receive Date: 20230602
  Receipt Date: 20230628
  Transmission Date: 20230721
  Serious: Yes (Hospitalization, Other)
  Sender: FDA-Public Use
  Company Number: DE-TAKEDA-2023TUS053648

PATIENT
  Age: 33 Year
  Sex: Female

DRUGS (5)
  1. ENTYVIO [Suspect]
     Active Substance: VEDOLIZUMAB
     Indication: Colitis ulcerative
     Dosage: UNK
     Route: 065
     Dates: start: 20230524
  2. PENTASA [Suspect]
     Active Substance: MESALAMINE
     Indication: Colitis ulcerative
     Dosage: UNK
     Route: 065
  3. MESALAMINE [Suspect]
     Active Substance: MESALAMINE
     Indication: Product used for unknown indication
     Dosage: UNK
     Route: 065
  4. MESALAMINE [Suspect]
     Active Substance: MESALAMINE
     Indication: Colitis ulcerative
     Dosage: UNK
     Route: 065
  5. CORTISONE [Suspect]
     Active Substance: CORTISONE
     Indication: Colitis ulcerative
     Dosage: UNK
     Route: 065

REACTIONS (15)
  - Colitis ulcerative [Unknown]
  - Ophthalmic herpes zoster [Unknown]
  - Drug intolerance [Unknown]
  - Drug effect less than expected [Unknown]
  - Asthenia [Unknown]
  - Dry eye [Unknown]
  - Eye pruritus [Unknown]
  - Eye irritation [Unknown]
  - Ocular discomfort [Unknown]
  - Asthenopia [Unknown]
  - Headache [Unknown]
  - Nasopharyngitis [Unknown]
  - Arthralgia [Unknown]
  - Oropharyngeal pain [Unknown]
  - Fatigue [Unknown]
